FAERS Safety Report 24823880 (Version 1)
Quarter: 2025Q1

REPORT INFORMATION
  Report Type: Spontaneous
  Country: US (occurrence: US)
  Receive Date: 20250109
  Receipt Date: 20250109
  Transmission Date: 20250408
  Serious: No
  Sender: ALKEM
  Company Number: US-ALKEM LABORATORIES LIMITED-US-ALKEM-2023-17039

PATIENT
  Age: 27 Year
  Sex: Male

DRUGS (6)
  1. DEFERASIROX [Suspect]
     Active Substance: DEFERASIROX
     Indication: Thalassaemia
     Dosage: 28 MILLIGRAM/KILOGRAM, QD
     Route: 065
  2. DEFERIPRONE [Suspect]
     Active Substance: DEFERIPRONE
     Indication: Thalassaemia
     Route: 065
  3. DEFERIPRONE [Suspect]
     Active Substance: DEFERIPRONE
     Dosage: 105 MILLIGRAM/KILOGRAM, QD (CHELATION AT ENTRY)
     Route: 065
  4. DEFERIPRONE [Suspect]
     Active Substance: DEFERIPRONE
     Dosage: 73 MILLIGRAM/KILOGRAM, QD (END DOSE)
     Route: 065
  5. DEFEROXAMINE [Suspect]
     Active Substance: DEFEROXAMINE MESYLATE
     Indication: Thalassaemia
     Route: 065
  6. DEFEROXAMINE [Suspect]
     Active Substance: DEFEROXAMINE MESYLATE
     Dosage: 53 MILLIGRAM/KILOGRAM, QD (CHELATION AT ENTRY)
     Route: 065

REACTIONS (1)
  - Treatment noncompliance [Unknown]
